FAERS Safety Report 10067981 (Version 2)
Quarter: 2014Q2

REPORT INFORMATION
  Report Type: Spontaneous
  Country: US (occurrence: US)
  Receive Date: 20140409
  Receipt Date: 20140508
  Transmission Date: 20141212
  Serious: Yes (Other)
  Sender: FDA-Public Use
  Company Number: US-PFIZER INC-2014094716

PATIENT
  Age: 6 Year
  Sex: Male
  Weight: 26.76 kg

DRUGS (1)
  1. GENOTROPIN [Suspect]
     Indication: PRADER-WILLI SYNDROME
     Dosage: 1 MG, 1X/DAY (1MG/D)
     Route: 059
     Dates: start: 201303

REACTIONS (1)
  - Weight decreased [Unknown]
